FAERS Safety Report 21122658 (Version 2)
Quarter: 2022Q3

REPORT INFORMATION
  Report Type: Report from Study
  Country: CA (occurrence: CA)
  Receive Date: 20220723
  Receipt Date: 20220726
  Transmission Date: 20221026
  Serious: Yes (Hospitalization, Other)
  Sender: FDA-Public Use
  Company Number: CA-HLS-202000520

PATIENT
  Age: 30 Year
  Sex: Male

DRUGS (1)
  1. CLOZARIL [Suspect]
     Active Substance: CLOZAPINE
     Indication: Product used for unknown indication
     Route: 048
     Dates: start: 20200116

REACTIONS (9)
  - Blood pressure increased [Recovered/Resolved]
  - COVID-19 [Recovering/Resolving]
  - Dizziness [Recovered/Resolved]
  - Dry mouth [Recovered/Resolved]
  - Heart rate increased [Not Recovered/Not Resolved]
  - Mean platelet volume increased [Unknown]
  - Salivary hypersecretion [Not Recovered/Not Resolved]
  - Infection [Recovered/Resolved]
  - Weight increased [Unknown]

NARRATIVE: CASE EVENT DATE: 20200428
